FAERS Safety Report 7627489-9 (Version None)
Quarter: 2011Q3

REPORT INFORMATION
  Report Type: 
  Country: None (occurrence: None)
  Receive Date: 20110721
  Receipt Date: 20110714
  Transmission Date: 20111222
  Serious: Yes (Life-Threatening, Hospitalization)
  Sender: FDA-Public Use
  Company Number: US-ELI_LILLY_AND_COMPANY-US201107005559

PATIENT
  Sex: Male
  Weight: 112.3 kg

DRUGS (1)
  1. EFFIENT [Suspect]
     Indication: ISCHAEMIC HEART DISEASE PROPHYLAXIS
     Dosage: 10 MG, QD
     Route: 048
     Dates: start: 20101113, end: 20101113

REACTIONS (4)
  - TROPONIN INCREASED [None]
  - OFF LABEL USE [None]
  - PULMONARY OEDEMA [None]
  - PETECHIAE [None]
